FAERS Safety Report 5124107-9 (Version None)
Quarter: 2006Q4

REPORT INFORMATION
  Report Type: 
  Country: None (occurrence: None)
  Receive Date: 20061010
  Receipt Date: 20060117
  Transmission Date: 20070319
  Serious: No
  Sender: FDA-Public Use
  Company Number: US-BRISTOL-MYERS SQUIBB COMPANY-13252853

PATIENT
  Sex: Male

DRUGS (3)
  1. AVAPRO [Suspect]
  2. PRAVACHOL [Concomitant]
  3. ASPIRIN [Concomitant]

REACTIONS (1)
  - WEIGHT LOSS POOR [None]
